FAERS Safety Report 20982854 (Version 2)
Quarter: 2022Q2

REPORT INFORMATION
  Report Type: Spontaneous
  Country: US (occurrence: US)
  Receive Date: 20220620
  Receipt Date: 20220630
  Transmission Date: 20220721
  Serious: No
  Sender: FDA-Public Use
  Company Number: US-LUPIN PHARMACEUTICALS INC.-2022-08718

PATIENT
  Age: 69 Year
  Sex: Female
  Weight: 66.224 kg

DRUGS (4)
  1. DULOXETINE [Suspect]
     Active Substance: DULOXETINE
     Indication: Fibromyalgia
     Dosage: 20 MILLIGRAM, QD
     Route: 048
  2. DULOXETINE [Suspect]
     Active Substance: DULOXETINE
     Indication: Pain
     Dosage: UNK TAPERED DOSE 3 MINI CAPSULE
     Route: 048
  3. DULOXETINE [Suspect]
     Active Substance: DULOXETINE
     Indication: Spinal operation
     Dosage: UNK TAPERED DOSE 2 MINI CAPSULE
     Route: 048
  4. DULOXETINE [Suspect]
     Active Substance: DULOXETINE
     Indication: Neck surgery
     Dosage: UNK TAPERED DOS 1 MINI CAPSULE
     Route: 048

REACTIONS (2)
  - Weight increased [Unknown]
  - Wrong technique in product usage process [Unknown]
